FAERS Safety Report 10468826 (Version 1)
Quarter: 2014Q3

REPORT INFORMATION
  Report Type: Spontaneous
  Country: IN (occurrence: IN)
  Receive Date: 20140923
  Receipt Date: 20140923
  Transmission Date: 20150326
  Serious: Yes (Other)
  Sender: FDA-Public Use
  Company Number: PHHY2014IN121175

PATIENT
  Age: 55 Year
  Sex: Female

DRUGS (4)
  1. BRIMONIDINE [Suspect]
     Active Substance: BRIMONIDINE\BRIMONIDINE TARTRATE
     Dosage: 0.2 %, UNK
     Route: 061
  2. ATROPINE SULFATE. [Suspect]
     Active Substance: ATROPINE SULFATE
     Dosage: 1 %, TID
  3. ACETAZOLAMIDE. [Suspect]
     Active Substance: ACETAZOLAMIDE
     Dosage: 250 MG, QID
     Route: 048
  4. TIMOLOL [Suspect]
     Active Substance: TIMOLOL
     Dosage: 0.5 %, BID

REACTIONS (4)
  - Choroidal detachment [Unknown]
  - Visual acuity reduced [Unknown]
  - Retinal pigmentation [Unknown]
  - Necrotising retinitis [Unknown]
